FAERS Safety Report 6336396-3 (Version None)
Quarter: 2009Q3

REPORT INFORMATION
  Report Type: 
  Country: None (occurrence: None)
  Receive Date: 20090828
  Receipt Date: 20090818
  Transmission Date: 20100115
  Serious: Yes (Life-Threatening, Hospitalization, Disabling, Other)
  Sender: FDA-Public Use
  Company Number: ADR13082009

PATIENT
  Age: 80 Year

DRUGS (2)
  1. CITALOPRAM HYDROBROMIDE [Suspect]
     Dosage: 20MG ORAL
     Route: 048
     Dates: start: 20070509, end: 20070607
  2. MIRTAZAPINE [Concomitant]

REACTIONS (4)
  - DIARRHOEA [None]
  - DRUG INTERACTION [None]
  - HEPATITIS [None]
  - HEPATOTOXICITY [None]
